FAERS Safety Report 9626900 (Version 2)
Quarter: 2013Q4

REPORT INFORMATION
  Report Type: Spontaneous
  Country: US (occurrence: US)
  Receive Date: 20131016
  Receipt Date: 20131108
  Transmission Date: 20140711
  Serious: Yes (Death, Other)
  Sender: FDA-Public Use
  Company Number: US-SA-2013SA101775

PATIENT
  Age: 56 Year
  Sex: 0

DRUGS (9)
  1. CAMPATH [Suspect]
     Indication: CHRONIC LYMPHOCYTIC LEUKAEMIA REFRACTORY
     Route: 042
     Dates: start: 20130321, end: 20130321
  2. CYTARABINE [Suspect]
     Indication: CHRONIC LYMPHOCYTIC LEUKAEMIA
     Dosage: FREQUENCY- Q12H D2,D3 DOSE:3 GRAM(S)/SQUARE METER
     Route: 042
     Dates: start: 20130222, end: 20130314
  3. LEUCOVORIN [Suspect]
     Indication: PRODUCT USED FOR UNKNOWN INDICATION
     Dosage: FREQUENCY Q6HX6
     Route: 048
     Dates: start: 20130222, end: 20130314
  4. METHOTREXATE [Suspect]
     Indication: PRODUCT USED FOR UNKNOWN INDICATION
     Dosage: DOSE:200 MG/M2 LOAD THEN 800MG/M2 FOLLOW?FREQUENCY:D1
     Route: 042
     Dates: start: 20130222, end: 20130314
  5. RITUXAN [Suspect]
     Indication: PRODUCT USED FOR UNKNOWN INDICATION
     Dosage: FREQUENCY:D0 Q21D
     Route: 042
     Dates: start: 20130201, end: 20130314
  6. DEXAMETHASONE [Suspect]
     Indication: PRODUCT USED FOR UNKNOWN INDICATION
     Dosage: FREQUENCY:D1-4,D11-14
     Route: 048
     Dates: start: 20130201, end: 20130221
  7. DOXORUBICIN [Suspect]
     Indication: PRODUCT USED FOR UNKNOWN INDICATION
     Dosage: FREQUENCY: D4
     Route: 042
     Dates: start: 20130201, end: 20130221
  8. VINCRISTINE [Suspect]
     Indication: PRODUCT USED FOR UNKNOWN INDICATION
     Dosage: D4 AND D11
     Route: 042
     Dates: start: 20130201, end: 20130221
  9. CYTOXAN [Suspect]
     Indication: PRODUCT USED FOR UNKNOWN INDICATION
     Dosage: FREQUENCY: Q12H X6 D1-3
     Route: 042
     Dates: start: 20130201, end: 20130221

REACTIONS (3)
  - Death [Fatal]
  - Chronic lymphocytic leukaemia [Unknown]
  - Febrile neutropenia [Unknown]
